FAERS Safety Report 16198715 (Version 3)
Quarter: 2019Q2

REPORT INFORMATION
  Report Type: Report from Study
  Country: CA (occurrence: CA)
  Receive Date: 20190415
  Receipt Date: 20190606
  Transmission Date: 20190711
  Serious: Yes (Other)
  Sender: FDA-Public Use
  Company Number: CA-JNJFOC-20190314827

PATIENT
  Age: 66 Year
  Sex: Male
  Weight: 106.59 kg

DRUGS (1)
  1. REMICADE [Suspect]
     Active Substance: INFLIXIMAB
     Indication: PYODERMA GANGRENOSUM
     Dosage: STRENGTH = 100 MG
     Route: 042

REACTIONS (3)
  - Pyoderma gangrenosum [Not Recovered/Not Resolved]
  - Type 2 diabetes mellitus [Unknown]
  - Skin cancer [Not Recovered/Not Resolved]

NARRATIVE: CASE EVENT DATE: 20190311
